FAERS Safety Report 6062331-1 (Version None)
Quarter: 2009Q1

REPORT INFORMATION
  Report Type: 
  Country: None (occurrence: None)
  Receive Date: 20090203
  Receipt Date: 20090127
  Transmission Date: 20090719
  Serious: Yes (Hospitalization, Other)
  Sender: FDA-Public Use
  Company Number: PHBS2009US00650

PATIENT
  Age: 67 Year
  Sex: Male

DRUGS (7)
  1. CYCLOSPORINE [Suspect]
     Indication: HEART TRANSPLANT
  2. MYCOPHENOLIC ACID [Suspect]
     Indication: HEART TRANSPLANT
  3. FLUVASTATIN [Concomitant]
     Indication: HEART TRANSPLANT
  4. AMOXICILLIN [Concomitant]
     Indication: NASAL CONGESTION
     Route: 048
  5. AMOXICILLIN [Concomitant]
     Indication: SINUSITIS
  6. LEVOFLOXACIN [Concomitant]
     Indication: NASAL CONGESTION
     Route: 048
  7. LEVOFLOXACIN [Concomitant]
     Indication: SINUSITIS

REACTIONS (13)
  - AMNESIA [None]
  - ANAEMIA [None]
  - CHOLECYSTECTOMY [None]
  - CHOLELITHIASIS [None]
  - COGNITIVE DISORDER [None]
  - DISTURBANCE IN ATTENTION [None]
  - FATIGUE [None]
  - GALLBLADDER DISORDER [None]
  - HYDROCEPHALUS [None]
  - MENINGITIS CRYPTOCOCCAL [None]
  - NASAL CONGESTION [None]
  - PYREXIA [None]
  - SINUSITIS [None]
